FAERS Safety Report 4589149-0 (Version None)
Quarter: 2005Q1

REPORT INFORMATION
  Report Type: 
  Country: None (occurrence: None)
  Receive Date: 20050215
  Receipt Date: 20050215
  Transmission Date: 20050727
  Serious: Yes (Other)
  Sender: FDA-Public Use
  Company Number: None

PATIENT
  Age: 2 Year
  Sex: Male
  Weight: 14.5151 kg

DRUGS (1)
  1. PIOXIL [Suspect]
     Indication: LICE INFESTATION
     Dates: start: 20050208, end: 20050209

REACTIONS (1)
  - CORNEAL ULCER [None]
